FAERS Safety Report 5804847-6 (Version None)
Quarter: 2008Q3

REPORT INFORMATION
  Report Type: 
  Country: None (occurrence: None)
  Receive Date: 20080709
  Receipt Date: 20080623
  Transmission Date: 20090109
  Serious: Yes (Other)
  Sender: FDA-Public Use
  Company Number: GB-PFIZER INC-2008047918

PATIENT
  Sex: Male

DRUGS (2)
  1. CHANTIX [Suspect]
  2. METHYLENEDIOXYMETHAMPHETAMINE [Concomitant]

REACTIONS (2)
  - DRUG ABUSE [None]
  - POTENTIATING DRUG INTERACTION [None]
